FAERS Safety Report 4278843-7 (Version None)
Quarter: 2004Q1

REPORT INFORMATION
  Report Type: 
  Country: None (occurrence: None)
  Receive Date: 20040126
  Receipt Date: 20030409
  Transmission Date: 20041129
  Serious: No
  Sender: FDA-Public Use
  Company Number: US-BRISTOL-MYERS SQUIBB COMPANY-12235131

PATIENT
  Sex: Male
  Weight: 36 kg

DRUGS (2)
  1. AMPHOTERICIN B FOR INJECTION [Suspect]
     Indication: HISTOPLASMOSIS
     Dosage: ADMINISTERED WITH 250CC
     Route: 042
  2. SODIUM CHLORIDE 0.9% [Concomitant]

REACTIONS (1)
  - DEVICE FAILURE [None]
